FAERS Safety Report 25707803 (Version 1)
Quarter: 2025Q3

REPORT INFORMATION
  Report Type: Report from Study
  Country: US (occurrence: US)
  Receive Date: 20250820
  Receipt Date: 20250820
  Transmission Date: 20251020
  Serious: Yes (Hospitalization)
  Sender: ABBVIE
  Company Number: US-ABBVIE-6301666

PATIENT
  Age: 48 Year
  Sex: Female
  Weight: 54 kg

DRUGS (1)
  1. SKYRIZI [Suspect]
     Active Substance: RISANKIZUMAB-RZAA
     Indication: Crohn^s disease
     Dosage: FROM STRENGTH 360 MILLIGRAM
     Route: 058
     Dates: start: 202410

REACTIONS (8)
  - Vomiting [Recovering/Resolving]
  - Injection site urticaria [Recovered/Resolved]
  - Dehydration [Recovering/Resolving]
  - Device issue [Not Recovered/Not Resolved]
  - Hypertension [Recovering/Resolving]
  - Injection site irritation [Recovered/Resolved]
  - Diarrhoea [Unknown]
  - Abdominal pain [Recovering/Resolving]

NARRATIVE: CASE EVENT DATE: 20250301
